FAERS Safety Report 16457704 (Version 1)
Quarter: 2019Q2

REPORT INFORMATION
  Report Type: Spontaneous
  Country: US (occurrence: US)
  Receive Date: 20190620
  Receipt Date: 20190620
  Transmission Date: 20190711
  Serious: No
  Sender: FDA-Public Use
  Company Number: US-PFIZER INC-2019257959

PATIENT
  Age: 35 Year
  Sex: Male
  Weight: 65.77 kg

DRUGS (2)
  1. CELEXA [CELECOXIB] [Suspect]
     Active Substance: CELECOXIB
     Indication: DEPRESSION
     Dosage: 40 MG, DAILY
     Route: 048
     Dates: start: 201608
  2. PROPANOLOL HCL [Suspect]
     Active Substance: PROPRANOLOL HYDROCHLORIDE
     Indication: ESSENTIAL TREMOR
     Dosage: 120 MG, 1X/DAY
     Route: 048
     Dates: start: 201608

REACTIONS (1)
  - Erectile dysfunction [Unknown]

NARRATIVE: CASE EVENT DATE: 201904
